FAERS Safety Report 7673938-X (Version None)
Quarter: 2011Q3

REPORT INFORMATION
  Report Type: 
  Country: None (occurrence: None)
  Receive Date: 20110810
  Receipt Date: 20110506
  Transmission Date: 20111222
  Serious: No
  Sender: FDA-Public Use
  Company Number: US-GLAXOSMITHKLINE-A0927331A

PATIENT
  Sex: Female

DRUGS (2)
  1. PAXIL [Suspect]
     Indication: ANXIETY
     Dosage: 30MG UNKNOWN
     Route: 048
     Dates: end: 20110315
  2. UNKNOWN [Concomitant]

REACTIONS (8)
  - SALIVARY HYPERSECRETION [None]
  - TREMOR [None]
  - HYPERHIDROSIS [None]
  - TINNITUS [None]
  - PAIN IN JAW [None]
  - NAUSEA [None]
  - EAR PAIN [None]
  - DIARRHOEA [None]
